FAERS Safety Report 4373267-6 (Version None)
Quarter: 2004Q2

REPORT INFORMATION
  Report Type: 
  Country: None (occurrence: None)
  Receive Date: 20040608
  Receipt Date: 20040528
  Transmission Date: 20050107
  Serious: Yes (Hospitalization)
  Sender: FDA-Public Use
  Company Number: GB-GLAXOSMITHKLINE-B0334224A

PATIENT
  Age: 47 Year
  Sex: Female

DRUGS (2)
  1. ZOVIRAX [Suspect]
     Route: 042
     Dates: start: 20040516
  2. ZOVIRAX [Suspect]
     Route: 048
     Dates: start: 20040514, end: 20040516

REACTIONS (3)
  - COMA [None]
  - ENCEPHALOPATHY [None]
  - MENTAL DISORDER [None]
